FAERS Safety Report 7434446-4 (Version None)
Quarter: 2011Q2

REPORT INFORMATION
  Report Type: 
  Country: None (occurrence: None)
  Receive Date: 20110425
  Receipt Date: 20110412
  Transmission Date: 20111010
  Serious: Yes (Other)
  Sender: FDA-Public Use
  Company Number: PHHY2011US25947

PATIENT
  Sex: Female

DRUGS (8)
  1. LEVOTHYROXINE SODIUM [Concomitant]
     Dosage: 1.25 UG
  2. CELEXA [Concomitant]
  3. ACTONEL [Suspect]
  4. LISINOPRIL [Concomitant]
     Dosage: 10 MG
  5. SIMVASTATIN [Concomitant]
     Dosage: 20 MG
  6. RECLAST [Suspect]
     Indication: OSTEOPOROSIS
     Dosage: 5 MG, UNK
     Route: 042
     Dates: start: 20100401
  7. URSODIOL [Concomitant]
     Dosage: 300 MG, TID
  8. AMBIEN [Concomitant]
     Dosage: 5 MG, PRN

REACTIONS (5)
  - BONE PAIN [None]
  - NECK PAIN [None]
  - NEPHROLITHIASIS [None]
  - FALL [None]
  - HEADACHE [None]
